FAERS Safety Report 20308698 (Version 1)
Quarter: 2022Q1

REPORT INFORMATION
  Report Type: Spontaneous
  Country: FR (occurrence: FR)
  Receive Date: 20220107
  Receipt Date: 20220107
  Transmission Date: 20220423
  Serious: Yes (Disabling)
  Sender: FDA-Public Use
  Company Number: None

PATIENT
  Age: 49 Year
  Sex: Male
  Weight: 64 kg

DRUGS (1)
  1. CISPLATIN [Suspect]
     Active Substance: CISPLATIN
     Indication: Tonsil cancer
     Dosage: 1 MG / ML, CONCENTRATE FOR SOLUTION FOR INFUSION; BRAND NAME: ACCORD
     Route: 042
     Dates: start: 20210118, end: 20210208

REACTIONS (3)
  - Hypoacusis [Not Recovered/Not Resolved]
  - Mucosal inflammation [Recovered/Resolved]
  - Tinnitus [Not Recovered/Not Resolved]

NARRATIVE: CASE EVENT DATE: 20210101
